FAERS Safety Report 6258020-0 (Version None)
Quarter: 2009Q3

REPORT INFORMATION
  Report Type: 
  Country: None (occurrence: None)
  Receive Date: 20090707
  Receipt Date: 20090629
  Transmission Date: 20100115
  Serious: Yes (Hospitalization, Congenital Anomaly)
  Sender: FDA-Public Use
  Company Number: AU-JNJFOC-20090700304

PATIENT
  Sex: Male
  Weight: 1.79 kg

DRUGS (5)
  1. TOPIRAMATE [Suspect]
     Indication: DRUG EXPOSURE DURING PREGNANCY
  2. MAXOLON [Concomitant]
     Indication: DRUG EXPOSURE DURING PREGNANCY
  3. ELEVIT [Concomitant]
     Indication: DRUG EXPOSURE DURING PREGNANCY
  4. FOLIC ACID [Concomitant]
     Indication: DRUG EXPOSURE DURING PREGNANCY
  5. PULMICORT-100 [Concomitant]
     Indication: DRUG EXPOSURE DURING PREGNANCY

REACTIONS (2)
  - HYPOSPADIAS [None]
  - PREMATURE BABY [None]
